FAERS Safety Report 11237349 (Version 1)
Quarter: 2015Q3

REPORT INFORMATION
  Report Type: Spontaneous
  Country: FR (occurrence: FR)
  Receive Date: 20150703
  Receipt Date: 20150703
  Transmission Date: 20151125
  Serious: Yes (Other)
  Sender: FDA-Public Use
  Company Number: FR-009507513-1506FRA014260

PATIENT
  Age: 60 Year
  Sex: Female

DRUGS (1)
  1. EZETROL [Suspect]
     Active Substance: EZETIMIBE
     Dosage: UNK
     Route: 048

REACTIONS (1)
  - Bile duct cancer [Unknown]

NARRATIVE: CASE EVENT DATE: 2012
